FAERS Safety Report 7584927-8 (Version None)
Quarter: 2011Q2

REPORT INFORMATION
  Report Type: 
  Country: None (occurrence: None)
  Receive Date: 20110630
  Receipt Date: 20090402
  Transmission Date: 20111010
  Serious: Yes (Death)
  Sender: FDA-Public Use
  Company Number: US-BAYER-200912715NA

PATIENT
  Age: 39 Year
  Sex: Female
  Weight: 53.061 kg

DRUGS (39)
  1. MAGNEVIST [Suspect]
     Indication: NUCLEAR MAGNETIC RESONANCE IMAGING
     Dosage: 20 ML, ONCE
     Route: 042
     Dates: start: 20020221, end: 20020221
  2. MAGNEVIST [Suspect]
     Dosage: 10 ML, ONCE
     Dates: start: 20050104, end: 20050104
  3. DIAZEPAM [Concomitant]
  4. EPOGEN [Concomitant]
  5. CALCITRIOL [Concomitant]
  6. CELLCEPT [Concomitant]
  7. PROGRAF [Concomitant]
  8. CLONIDINE [Concomitant]
  9. CARDURA [Concomitant]
  10. MAGNEVIST [Suspect]
     Dosage: UNK
     Dates: start: 20040826, end: 20040826
  11. MAGNEVIST [Suspect]
     Dosage: 15 ML, ONCE
     Dates: start: 20050414, end: 20050414
  12. OMNISCAN [Suspect]
     Indication: ANGIOGRAM
  13. MAGNEVIST [Suspect]
     Indication: ANGIOGRAM
     Dosage: 62 ML, ONCE
     Dates: start: 20040618, end: 20040618
  14. OPTIMARK [Suspect]
     Indication: NUCLEAR MAGNETIC RESONANCE IMAGING
  15. PROHANCE [Suspect]
     Indication: NUCLEAR MAGNETIC RESONANCE IMAGING
  16. MAGNEVIST [Suspect]
     Indication: VENOGRAM
     Dosage: 15 ML, ONCE
     Route: 042
     Dates: start: 20040621, end: 20040621
  17. OMNISCAN [Suspect]
     Indication: NUCLEAR MAGNETIC RESONANCE IMAGING
  18. MULTIHANCE [Suspect]
     Indication: ANGIOGRAM
  19. WARFARIN SODIUM [Concomitant]
  20. ABILIFY [Concomitant]
  21. VENLAFAXINE [Concomitant]
  22. NORVASC [Concomitant]
  23. RENAGEL [Concomitant]
  24. MORPHINE [Concomitant]
  25. LITHIUM CARBONATE [Concomitant]
  26. GABITRIL [Concomitant]
  27. TACROLIMUS [Concomitant]
  28. OPTIMARK [Suspect]
     Indication: ANGIOGRAM
  29. PROHANCE [Suspect]
     Indication: ANGIOGRAM
  30. GADOLINIUM IN UNSPECIFIED DRUG [Suspect]
     Indication: NUCLEAR MAGNETIC RESONANCE IMAGING
     Dosage: UNK
     Dates: start: 20030513, end: 20030513
  31. MAGNEVIST [Suspect]
     Dosage: 35 ML, ONCE
     Dates: start: 20040819, end: 20040819
  32. MULTIHANCE [Suspect]
     Indication: NUCLEAR MAGNETIC RESONANCE IMAGING
  33. SYNTHROID [Concomitant]
  34. METOPROLOL TARTRATE [Concomitant]
  35. PHOSLO [Concomitant]
  36. PROCARDIA [Concomitant]
  37. MAGNEVIST [Suspect]
     Indication: NUCLEAR MAGNETIC RESONANCE IMAGING BRAIN
     Dosage: UNK
     Dates: start: 20040113, end: 20040113
  38. FLUDROCORTISONE ACETATE [Concomitant]
  39. SIMVASTATIN [Concomitant]

REACTIONS (8)
  - PAIN [None]
  - PEAU D'ORANGE [None]
  - ARTHRALGIA [None]
  - JOINT STIFFNESS [None]
  - MUSCULAR WEAKNESS [None]
  - NEPHROGENIC SYSTEMIC FIBROSIS [None]
  - SKIN HYPERTROPHY [None]
  - SKIN INDURATION [None]
